FAERS Safety Report 25270759 (Version 1)
Quarter: 2025Q2

REPORT INFORMATION
  Report Type: Spontaneous
  Country: FR (occurrence: FR)
  Receive Date: 20250505
  Receipt Date: 20250505
  Transmission Date: 20250716
  Serious: Yes (Other)
  Sender: MEITHEAL PHARMACEUTICALS
  Company Number: FR-MEITHEAL-2025MPLIT00164

PATIENT
  Sex: Female

DRUGS (4)
  1. DACARBAZINE [Suspect]
     Active Substance: DACARBAZINE
     Indication: Product used for unknown indication
     Route: 065
  2. ADRIAMYCIN [Suspect]
     Active Substance: DOXORUBICIN HYDROCHLORIDE
     Indication: Product used for unknown indication
     Route: 065
  3. BLEOMYCIN [Suspect]
     Active Substance: BLEOMYCIN SULFATE
     Indication: Product used for unknown indication
     Route: 065
  4. VINBLASTINE [Suspect]
     Active Substance: VINBLASTINE
     Indication: Product used for unknown indication
     Route: 065

REACTIONS (2)
  - Abortion spontaneous [Unknown]
  - Exposure via partner [Unknown]
